FAERS Safety Report 6673500-1 (Version None)
Quarter: 2010Q2

REPORT INFORMATION
  Report Type: 
  Country: None (occurrence: None)
  Receive Date: 20100408
  Receipt Date: 20100331
  Transmission Date: 20101027
  Serious: Yes (Other)
  Sender: FDA-Public Use
  Company Number: CH-JNJCH-2010008107

PATIENT
  Age: 16 Year
  Sex: Male

DRUGS (3)
  1. MINOXIDIL [Suspect]
     Indication: DRUG USE FOR UNKNOWN INDICATION
     Dosage: TEXT:UNKNOWN
     Route: 061
     Dates: start: 20091001, end: 20091201
  2. SPORANOX [Suspect]
     Indication: DRUG USE FOR UNKNOWN INDICATION
     Dosage: TEXT:UNKNOWN
     Route: 048
     Dates: start: 20091201, end: 20100101
  3. INFLUENZA VACCINE [Suspect]
     Indication: DRUG USE FOR UNKNOWN INDICATION
     Dosage: TEXT:UNKNOWN
     Route: 030
     Dates: start: 20091123, end: 20091123

REACTIONS (7)
  - AFFECTIVE DISORDER [None]
  - AGITATION [None]
  - DISTURBANCE IN ATTENTION [None]
  - MEMORY IMPAIRMENT [None]
  - SLEEP DISORDER [None]
  - STUPOR [None]
  - SUICIDAL IDEATION [None]
